FAERS Safety Report 8765569 (Version 2)
Quarter: 2012Q4

REPORT INFORMATION
  Report Type: 
  Country: NL (occurrence: NL)
  Receive Date: 20120902
  Receipt Date: 20121029
  Transmission Date: 20130627
  Serious: Yes (Death, Other)
  Sender: FDA-Public Use
  Company Number: PHHY2012NL075414

PATIENT
  Age: 64 Year
  Sex: Female
  Weight: 39 kg

DRUGS (10)
  1. ZOMETA [Suspect]
     Indication: METASTASES TO BONE
     Dosage: 4 mg/ 100ml once per 42 days
     Dates: start: 20110615
  2. ZOMETA [Suspect]
     Dosage: 4 mg/ 100ml once per 42 days
     Dates: start: 20120619
  3. ZOMETA [Suspect]
     Dosage: 4 mg/ 100ml once per 42 days
     Dates: start: 20120802
  4. CELECOXIB [Concomitant]
  5. PROPRANOLOL [Concomitant]
  6. SPIRONOLACTONE [Concomitant]
  7. OXYCONTIN [Concomitant]
  8. OXYNORM [Concomitant]
  9. INHIBIN [Concomitant]
  10. PARACETAMOL [Concomitant]

REACTIONS (2)
  - Death [Fatal]
  - Metastasis [Unknown]
